FAERS Safety Report 7297932-6 (Version None)
Quarter: 2011Q1

REPORT INFORMATION
  Report Type: 
  Country: None (occurrence: None)
  Receive Date: 20110217
  Receipt Date: 20110208
  Transmission Date: 20110831
  Serious: Yes (Other)
  Sender: FDA-Public Use
  Company Number: DE-JNJFOC-20101003796

PATIENT
  Sex: Male

DRUGS (2)
  1. SIMPONI [Suspect]
     Indication: RHEUMATOID ARTHRITIS
     Route: 058
  2. ARCOXIA [Concomitant]

REACTIONS (6)
  - POLYNEUROPATHY [None]
  - ARTHRITIS [None]
  - ABDOMINAL PAIN [None]
  - NASOPHARYNGITIS [None]
  - FATIGUE [None]
  - INFECTION [None]
